FAERS Safety Report 4667290-1 (Version None)
Quarter: 2005Q2

REPORT INFORMATION
  Report Type: 
  Country: None (occurrence: None)
  Receive Date: 20050520
  Receipt Date: 20040910
  Transmission Date: 20051028
  Serious: Yes (Other)
  Sender: FDA-Public Use
  Company Number: PHEH2004US09826

PATIENT
  Age: 41 Year
  Sex: Male

DRUGS (2)
  1. ZOMETA [Suspect]
     Indication: PLASMACYTOMA
     Dosage: 4 MG Q4W
     Route: 042
     Dates: start: 20020214, end: 20031110
  2. LIDOCAINE [Concomitant]
     Indication: ANAESTHESIA

REACTIONS (9)
  - DENTAL ALVEOLAR ANOMALY [None]
  - GINGIVAL INFECTION [None]
  - GINGIVAL SWELLING [None]
  - IMPAIRED HEALING [None]
  - ORAL PAIN [None]
  - OSTEONECROSIS [None]
  - PRIMARY SEQUESTRUM [None]
  - SEQUESTRECTOMY [None]
  - TOOTH EXTRACTION [None]
